FAERS Safety Report 4758987-3 (Version None)
Quarter: 2005Q3

REPORT INFORMATION
  Report Type: 
  Country: None (occurrence: None)
  Receive Date: 20050826
  Receipt Date: 20050815
  Transmission Date: 20060218
  Serious: No
  Sender: FDA-Public Use
  Company Number: 05H-163-0302083-00

PATIENT
  Age: 36 Year
  Sex: Female

DRUGS (3)
  1. EPINEPHRINE [Suspect]
     Indication: HYPERSENSITIVITY
     Dosage: 0.2, ONCE, INTRAVENOUS
     Route: 042
  2. AVELOX (MOXIVLOXACIN HYDROCHLORIDE) [Concomitant]
  3. BENADRYL (DIPHENHJYDRAMINE HYDROCHLORIDE) [Concomitant]

REACTIONS (9)
  - CHEST DISCOMFORT [None]
  - CHEST PAIN [None]
  - DRUG HYPERSENSITIVITY [None]
  - HEADACHE [None]
  - MEDICATION ERROR [None]
  - PHARYNGEAL OEDEMA [None]
  - TACHYCARDIA [None]
  - URTICARIA [None]
  - VENTRICULAR TACHYCARDIA [None]
